FAERS Safety Report 10005329 (Version 1)
Quarter: 2014Q1

REPORT INFORMATION
  Report Type: Spontaneous
  Country: GB (occurrence: GB)
  Receive Date: 20140313
  Receipt Date: 20140313
  Transmission Date: 20141002
  Serious: Yes (Hospitalization)
  Sender: FDA-Public Use
  Company Number: GB-JNJFOC-20140303742

PATIENT
  Age: 42 Year
  Sex: Male

DRUGS (4)
  1. NICORETTE QUICKMIST [Suspect]
     Indication: PRODUCT USED FOR UNKNOWN INDICATION
     Route: 065
  2. RISPERIDONE [Concomitant]
     Indication: BIPOLAR DISORDER
     Route: 065
  3. AMITRIPTYLINE [Concomitant]
     Indication: BIPOLAR DISORDER
     Route: 065
  4. PRIADEL [Concomitant]
     Indication: BIPOLAR DISORDER
     Dosage: 800 (UNSPECIFIED)
     Route: 065

REACTIONS (1)
  - Tongue blistering [Not Recovered/Not Resolved]
